FAERS Safety Report 6164230-3 (Version None)
Quarter: 2009Q2

REPORT INFORMATION
  Report Type: 
  Country: None (occurrence: None)
  Receive Date: 20090422
  Receipt Date: 20050224
  Transmission Date: 20091009
  Serious: No
  Sender: FDA-Public Use
  Company Number: CA-SOLVAY-00305000685

PATIENT
  Age: 66 Year
  Sex: Female

DRUGS (4)
  1. HORMONES [Concomitant]
     Indication: ILL-DEFINED DISORDER
     Dosage: DAILY DOSE:  UNKNOWN
     Route: 065
  2. ANDROGEL [Suspect]
     Indication: ACCIDENTAL EXPOSURE
     Dosage: DAILY DOSE:  UNKNOWN
     Route: 065
  3. VITAMINS [Concomitant]
     Indication: ILL-DEFINED DISORDER
     Dosage: DAILY DOSE:  UNKNOWN
     Route: 065
  4. SECTRAL [Concomitant]
     Indication: ILL-DEFINED DISORDER
     Dosage: DAILY DOSE:  UNKNOWN
     Route: 065

REACTIONS (2)
  - ACNE [None]
  - PRURITUS [None]
